FAERS Safety Report 9138322 (Version 1)
Quarter: 2013Q1

REPORT INFORMATION
  Report Type: Spontaneous
  Country: GB (occurrence: None)
  Receive Date: 20130228
  Receipt Date: 20130228
  Transmission Date: 20140127
  Serious: Yes (Death)
  Sender: FDA-Public Use
  Company Number: FK201300595

PATIENT
  Age: 60 Year
  Sex: Male
  Weight: 77 kg

DRUGS (30)
  1. GENTAMICIN [Suspect]
     Indication: NON-SMALL CELL LUNG CANCER STAGE IIIA
     Dosage: (NOT OTHERWISE SPECIFIED))
     Route: 042
     Dates: start: 20120806, end: 20121015
  2. ACYCLOVIR (ACICLOVIR) (ACICLOVIR) [Concomitant]
  3. AMIODARONE (AMIODARONE) [Concomitant]
  4. CARBOCISTEINE(CARBOCISTEINE) [Concomitant]
  5. CARBOPLATIN(CARBOPLATIN) [Concomitant]
  6. CASPOFUNGIN(CASPOFUNGIN) [Concomitant]
  7. CLARITHROMYCIN(CLARITHROMYCIN) [Concomitant]
  8. AMOXICILLIN\CLAVULANATE POTASSIUM [Concomitant]
  9. CO-CODAMOL(PANADEINE CO) [Concomitant]
  10. CO-TRIMOXAZOLE(CO-TRIMOXAZOLE) [Concomitant]
  11. DALTEPARIN(DALTEPARIN) [Concomitant]
  12. DIAMORPHINE(DIAMORPHINE) [Concomitant]
  13. EPOPROSTENOL(EPOPROSTENOL) [Concomitant]
  14. ESOMEPRAZOLE(ESOMEPRAZOLE) [Concomitant]
  15. FENTANYL(FENTANYL) [Concomitant]
  16. FUROSEMIDE(FUROSEMIDE) [Concomitant]
  17. GAVISCON(GAVISCON [Concomitant]
  18. HYDROCORTISONE(HYDROCORTISONE) [Concomitant]
  19. LANSOPRAZOLE(LANSOPRAZOLE) [Concomitant]
  20. MEROPENEM(MEROPENEM) [Concomitant]
  21. MIDAZOLAM(MIDAZOLAM) [Concomitant]
  22. MORPHINE SULPHATE(MORPHINE SULFATE) [Concomitant]
  23. NAPROXEN(NAPROXEN) [Concomitant]
  24. NORADRENALINE(NOREPINEPHRINE) [Concomitant]
  25. NORMAL SALINE(SODIUM CHLORIDE) [Concomitant]
  26. NYSTATIN(NYSTATIN) [Concomitant]
  27. PROPOFOL(PROPOFOL) [Concomitant]
  28. SALBUTAMOL(SALBUTAMOL) [Concomitant]
  29. TAZOCIN(PIP/TAZO) [Concomitant]
  30. TIOTROPIUM(TIOTROPIUM BROMIDE) [Concomitant]

REACTIONS (9)
  - Pulmonary fibrosis [None]
  - Renal failure acute [None]
  - Pneumonia [None]
  - Thrombocytopenia [None]
  - Lower respiratory tract infection [None]
  - Acute respiratory distress syndrome [None]
  - Continuous haemodiafiltration [None]
  - Haemoptysis [None]
  - Respiratory failure [None]
